FAERS Safety Report 8536693-7 (Version None)
Quarter: 2012Q3

REPORT INFORMATION
  Report Type: 
  Country: None (occurrence: None)
  Receive Date: 20120725
  Receipt Date: 20120710
  Transmission Date: 20120928
  Serious: Yes (Death, Other)
  Sender: FDA-Public Use
  Company Number: GB-ROCHE-487535

PATIENT
  Sex: Male
  Weight: 93.8 kg

DRUGS (2)
  1. ISOTRETINOIN [Suspect]
     Indication: ACNE
     Route: 065
  2. ISOTRETINOIN [Suspect]

REACTIONS (4)
  - HEAD INJURY [None]
  - SCHIZOPHRENIA [None]
  - DEPRESSION [None]
  - COMPLETED SUICIDE [None]
